FAERS Safety Report 10020319 (Version 2)
Quarter: 2015Q2

REPORT INFORMATION
  Report Type: Report from Study
  Country: US (occurrence: US)
  Receive Date: 20140319
  Receipt Date: 20150427
  Transmission Date: 20150821
  Serious: Yes (Other)
  Sender: FDA-Public Use
  Company Number: US-ROCHE-1361297

PATIENT
  Age: 16 Year
  Sex: Male
  Weight: 44.4 kg

DRUGS (39)
  1. NUTROPIN AQ [Suspect]
     Active Substance: SOMATROPIN
     Route: 058
  2. FERRLECIT (UNITED STATES) [Concomitant]
     Dosage: PRN
     Route: 042
  3. NUTROPIN AQ [Suspect]
     Active Substance: SOMATROPIN
     Route: 058
  4. FERROUS SULFATE [Concomitant]
     Active Substance: FERROUS SULFATE\FERROUS SULFATE, DRIED
     Route: 048
  5. IMURAN [Concomitant]
     Active Substance: AZATHIOPRINE
     Route: 048
  6. SODIUM BICARBONATE. [Concomitant]
     Active Substance: SODIUM BICARBONATE
     Route: 048
  7. PROTONIX (UNITED STATES) [Concomitant]
     Route: 048
  8. ZANTAC [Concomitant]
     Active Substance: RANITIDINE HYDROCHLORIDE
     Route: 048
  9. MIRALAX [Concomitant]
     Active Substance: POLYETHYLENE GLYCOL 3350
     Dosage: PRN
     Route: 048
  10. ACCUPRIL [Concomitant]
     Active Substance: QUINAPRIL HYDROCHLORIDE
  11. AVAPRO [Concomitant]
     Active Substance: IRBESARTAN
     Route: 065
  12. ARANESP [Concomitant]
     Active Substance: DARBEPOETIN ALFA
     Route: 058
  13. ZOFRAN [Concomitant]
     Active Substance: ONDANSETRON HYDROCHLORIDE
     Dosage: PRN
     Route: 048
  14. NORVASC [Concomitant]
     Active Substance: AMLODIPINE BESYLATE
     Route: 065
  15. BACTRIM [Concomitant]
     Active Substance: SULFAMETHOXAZOLE\TRIMETHOPRIM
     Route: 048
  16. VALGANCICLOVIR [Concomitant]
     Active Substance: VALGANCICLOVIR
     Route: 048
  17. NUTROPIN AQ [Suspect]
     Active Substance: SOMATROPIN
     Indication: CHRONIC KIDNEY DISEASE
     Route: 058
  18. RENVELA [Concomitant]
     Active Substance: SEVELAMER CARBONATE
     Dosage: 4 TABS WITH MEALS AND SNACKS
     Route: 048
  19. NEPHRO-VITE [Concomitant]
     Route: 065
  20. PROCARDIA XL [Concomitant]
     Active Substance: NIFEDIPINE
     Route: 048
  21. FERROUS GLUCONATE [Concomitant]
     Active Substance: FERROUS GLUCONATE
     Route: 065
  22. BUMEX [Concomitant]
     Active Substance: BUMETANIDE
     Route: 048
  23. NUTROPIN AQ [Suspect]
     Active Substance: SOMATROPIN
     Route: 058
  24. LIPITOR [Concomitant]
     Active Substance: ATORVASTATIN CALCIUM
     Route: 048
  25. KYTRIL [Concomitant]
     Active Substance: GRANISETRON HYDROCHLORIDE
     Indication: NAUSEA
     Route: 048
  26. ENALAPRIL [Concomitant]
     Active Substance: ENALAPRIL
     Route: 048
  27. CALCITRIOL. [Concomitant]
     Active Substance: CALCITRIOL
     Route: 048
  28. NUTROPIN AQ [Suspect]
     Active Substance: SOMATROPIN
     Route: 058
  29. BUSPAR [Concomitant]
     Active Substance: BUSPIRONE HYDROCHLORIDE
     Dosage: 10 MG AT AM AND 5 MG AT PM
     Route: 048
  30. ATENOLOL. [Concomitant]
     Active Substance: ATENOLOL
     Route: 048
  31. NEPHROCAPS [Concomitant]
     Active Substance: ASCORBIC ACID\BIOTIN\CYANOCOBALAMIN\FOLIC ACID\NIACIN\PANTOTHENIC ACID\PYRIDOXINE\RIBOFLAVIN\THIAMINE
     Route: 048
  32. METOLAZONE. [Concomitant]
     Active Substance: METOLAZONE
     Route: 048
  33. TACROLIMUS. [Concomitant]
     Active Substance: TACROLIMUS
  34. ZOLOFT [Concomitant]
     Active Substance: SERTRALINE HYDROCHLORIDE
     Route: 048
  35. ATARAX [Concomitant]
     Active Substance: HYDROXYZINE\HYDROXYZINE HYDROCHLORIDE
     Dosage: QHS
     Route: 048
  36. PROCRIT [Concomitant]
     Active Substance: ERYTHROPOIETIN
     Route: 065
  37. PROGRAF [Concomitant]
     Active Substance: TACROLIMUS\TACROLIMUS ANHYDROUS
     Route: 048
  38. PREDNISONE. [Concomitant]
     Active Substance: PREDNISONE
     Route: 048
  39. CALCITRIOL. [Concomitant]
     Active Substance: CALCITRIOL
     Route: 048

REACTIONS (15)
  - Oedema peripheral [Unknown]
  - Injection site pain [Unknown]
  - Periorbital oedema [Unknown]
  - Eczema [Unknown]
  - Upper respiratory tract infection [Recovering/Resolving]
  - Headache [Unknown]
  - Abdominal pain [Unknown]
  - Renal failure [Unknown]
  - Growth retardation [Unknown]
  - Nasal congestion [Unknown]
  - Cushingoid [Unknown]
  - Blood pressure increased [Unknown]
  - Pyrexia [Unknown]
  - Granuloma [Unknown]
  - Malaise [Unknown]

NARRATIVE: CASE EVENT DATE: 201402
